FAERS Safety Report 8767013 (Version 1)
Quarter: 2012Q4

REPORT INFORMATION
  Report Type: 
  Country: US (occurrence: US)
  Receive Date: 20120904
  Receipt Date: 20120904
  Transmission Date: 20130627
  Serious: Yes (Other)
  Sender: FDA-Public Use
  Company Number: US-PFIZER INC-2012213034

PATIENT
  Age: 60 Year
  Sex: Male
  Weight: 183.67 kg

DRUGS (7)
  1. VIAGRA [Suspect]
     Indication: ERECTILE DYSFUNCTION
     Dosage: 50 mg, as needed
     Route: 048
     Dates: start: 201012, end: 201205
  2. MOEXIPRIL [Concomitant]
     Indication: HYPERTENSION
     Dosage: UNK, 1x/day
  3. AMLODIPINE [Concomitant]
     Indication: HYPERTENSION
     Dosage: UNK, 1x/day
  4. METFORMIN [Concomitant]
     Indication: GLUCOSE TOLERANCE IMPAIRED
     Dosage: UNK, 2x/day
  5. ASPIRIN [Concomitant]
     Dosage: 325 mg, 1x/day
  6. FUROSEMIDE [Concomitant]
     Dosage: 40 mg, UNK
  7. LIPITOR [Concomitant]
     Indication: BLOOD CHOLESTEROL INCREASED
     Dosage: UNK, 1x/day

REACTIONS (3)
  - Memory impairment [Unknown]
  - Weight decreased [Unknown]
  - Flushing [Recovered/Resolved]
